FAERS Safety Report 23013296 (Version 2)
Quarter: 2023Q4

REPORT INFORMATION
  Report Type: Other
  Country: US (occurrence: None)
  Receive Date: 20230930
  Receipt Date: 20231006
  Transmission Date: 20240110
  Serious: Yes (Other)
  Sender: FDA-Public Use
  Company Number: US-ROCHE-3430427

PATIENT
  Age: 48 Year
  Sex: Female
  Weight: 56.75 kg

DRUGS (5)
  1. OCREVUS [Suspect]
     Active Substance: OCRELIZUMAB
     Indication: Relapsing-remitting multiple sclerosis
     Dosage: DATE OF SERVICE: 27/MAR/2023; 13/MAR/2023, 600 MG FOR EVERY 24 WEEKS
     Route: 042
     Dates: start: 20230313
  2. BUPROPION [Concomitant]
     Active Substance: BUPROPION
  3. DALFAMPRIDINE [Concomitant]
     Active Substance: DALFAMPRIDINE
  4. TOPIRAMATE [Concomitant]
     Active Substance: TOPIRAMATE
  5. TRAZODONE [Concomitant]
     Active Substance: TRAZODONE HYDROCHLORIDE

REACTIONS (1)
  - Herpes zoster [Recovered/Resolved]

NARRATIVE: CASE EVENT DATE: 20230807
